FAERS Safety Report 11966512 (Version 2)
Quarter: 2016Q1

REPORT INFORMATION
  Report Type: Report from Study
  Country: FR (occurrence: FR)
  Receive Date: 20160127
  Receipt Date: 20160324
  Transmission Date: 20160526
  Serious: Yes (Hospitalization)
  Sender: FDA-Public Use
  Company Number: FR-CELGENE-FRA-2015122126

PATIENT
  Age: 75 Year
  Sex: Male
  Weight: 62.5 kg

DRUGS (2)
  1. REVLIMID [Suspect]
     Active Substance: LENALIDOMIDE
     Indication: PLASMA CELL MYELOMA
     Route: 048
     Dates: start: 20140519
  2. DEXAMETHASONE. [Suspect]
     Active Substance: DEXAMETHASONE
     Indication: PLASMA CELL MYELOMA
     Route: 048
     Dates: start: 20140519, end: 20151005

REACTIONS (1)
  - Spinal osteoarthritis [Recovered/Resolved]

NARRATIVE: CASE EVENT DATE: 20151204
